FAERS Safety Report 10069780 (Version 2)
Quarter: 2014Q2

REPORT INFORMATION
  Report Type: Spontaneous
  Country: US (occurrence: US)
  Receive Date: 20140410
  Receipt Date: 20140521
  Transmission Date: 20141212
  Serious: No
  Sender: FDA-Public Use
  Company Number: US-PFIZER INC-2014096939

PATIENT
  Age: 78 Year
  Sex: Male

DRUGS (1)
  1. NITROSTAT [Suspect]
     Indication: ANGINA PECTORIS
     Dosage: 0.4 MG, UNK
     Dates: start: 20140331

REACTIONS (3)
  - Glossodynia [Unknown]
  - Dysgeusia [Unknown]
  - Product taste abnormal [Unknown]
